FAERS Safety Report 10884566 (Version 2)
Quarter: 2015Q1

REPORT INFORMATION
  Report Type: Report from Study
  Country: GB (occurrence: GB)
  Receive Date: 20150304
  Receipt Date: 20150309
  Transmission Date: 20150721
  Serious: Yes (Hospitalization)
  Sender: FDA-Public Use
  Company Number: GB-EISAI MEDICAL RESEARCH-EC-2015-004543

PATIENT
  Age: 73 Year
  Sex: Male
  Weight: 93.2 kg

DRUGS (4)
  1. LENVATINIB [Suspect]
     Active Substance: LENVATINIB
     Indication: HEPATOCELLULAR CARCINOMA
     Route: 048
     Dates: start: 20141017, end: 20150223
  2. DOMPERIDONE [Concomitant]
     Active Substance: DOMPERIDONE
  3. PARACETAMOL [Concomitant]
     Active Substance: ACETAMINOPHEN
  4. CODEINE PHOSPHATE [Concomitant]
     Active Substance: CODEINE PHOSPHATE

REACTIONS (1)
  - Abdominal pain lower [Not Recovered/Not Resolved]

NARRATIVE: CASE EVENT DATE: 20150225
